FAERS Safety Report 22613749 (Version 1)
Quarter: 2023Q2

REPORT INFORMATION
  Report Type: Spontaneous
  Country: KR (occurrence: KR)
  Receive Date: 20230619
  Receipt Date: 20230619
  Transmission Date: 20230721
  Serious: Yes (Hospitalization, Other)
  Sender: FDA-Public Use
  Company Number: KR-CELLTRION INC.-2023KR012325

PATIENT

DRUGS (2)
  1. RITUXIMAB [Suspect]
     Active Substance: RITUXIMAB
     Indication: Follicular lymphoma
     Dosage: UNK
     Dates: start: 20200512
  2. BENDAMUSTINE [Suspect]
     Active Substance: BENDAMUSTINE
     Indication: Follicular lymphoma
     Dosage: UNK
     Dates: start: 20200512

REACTIONS (3)
  - Interstitial lung disease [Unknown]
  - COVID-19 [Recovered/Resolved]
  - Infection reactivation [Recovered/Resolved]
